FAERS Safety Report 24298232 (Version 1)
Quarter: 2024Q3

REPORT INFORMATION
  Report Type: Spontaneous
  Country: US (occurrence: None)
  Receive Date: 20240906
  Receipt Date: 20240906
  Transmission Date: 20241016
  Serious: Yes (Hospitalization)
  Sender: Public
  Company Number: None

PATIENT
  Age: 91 Year
  Sex: Male

DRUGS (2)
  1. PROCRIT [Suspect]
     Active Substance: ERYTHROPOIETIN
     Indication: B-cell lymphoma
     Dosage: OTHER QUANTITY : 10,000U/M?FREQUENCY : WEEKLY?
     Route: 058
     Dates: start: 202407
  2. JAYPIRCA [Concomitant]
     Active Substance: PIRTOBRUTINIB

REACTIONS (3)
  - White blood cell count increased [None]
  - Renal impairment [None]
  - Blood uric acid increased [None]

NARRATIVE: CASE EVENT DATE: 20240807
